FAERS Safety Report 8477154-3 (Version None)
Quarter: 2012Q2

REPORT INFORMATION
  Report Type: 
  Country: None (occurrence: None)
  Receive Date: 20120625
  Receipt Date: 20120625
  Transmission Date: 20120825
  Serious: Yes (Hospitalization)
  Sender: FDA-Public Use
  Company Number: None

PATIENT
  Age: 56 Year
  Sex: Male
  Weight: 74.1 kg

DRUGS (1)
  1. CISPLATIN [Suspect]
     Indication: HEAD AND NECK CANCER
     Dosage: 200 MG ONCE IV
     Route: 042
     Dates: start: 20120411, end: 20120502

REACTIONS (12)
  - OROPHARYNGEAL PAIN [None]
  - NAUSEA [None]
  - WEIGHT DECREASED [None]
  - VOMITING [None]
  - DEHYDRATION [None]
  - MUCOSAL INFLAMMATION [None]
  - SUICIDAL IDEATION [None]
  - FEELING ABNORMAL [None]
  - APHAGIA [None]
  - THROMBOCYTOPENIA [None]
  - NO THERAPEUTIC RESPONSE [None]
  - ANAEMIA [None]
